FAERS Safety Report 16122945 (Version 3)
Quarter: 2019Q2

REPORT INFORMATION
  Report Type: Report from Study
  Country: CA (occurrence: CA)
  Receive Date: 20190327
  Receipt Date: 20190502
  Transmission Date: 20190711
  Serious: Yes (Other)
  Sender: FDA-Public Use
  Company Number: CA-REGENERON PHARMACEUTICALS, INC.-2019-23107

PATIENT

DRUGS (2)
  1. EYLEA [Suspect]
     Active Substance: AFLIBERCEPT
     Indication: AGE-RELATED MACULAR DEGENERATION
     Dosage: UNK
  2. EYLEA [Suspect]
     Active Substance: AFLIBERCEPT
     Dosage: UNK, ONCE
     Dates: start: 20190214, end: 20190214

REACTIONS (2)
  - Wrong technique in product usage process [Unknown]
  - Endophthalmitis [Recovered/Resolved]

NARRATIVE: CASE EVENT DATE: 20190214
